FAERS Safety Report 25068153 (Version 1)
Quarter: 2025Q1

REPORT INFORMATION
  Report Type: Spontaneous
  Country: US (occurrence: None)
  Receive Date: 20250312
  Receipt Date: 20250312
  Transmission Date: 20250408
  Serious: Yes (Hospitalization)
  Sender: FDA-CTU
  Company Number: None

PATIENT
  Age: 71 Year
  Sex: Male
  Weight: 89 kg

DRUGS (2)
  1. CISPLATIN [Suspect]
     Active Substance: CISPLATIN
  2. GEMCITABINE HYDROCHLORIDE [Suspect]
     Active Substance: GEMCITABINE HYDROCHLORIDE

REACTIONS (7)
  - Hypertension [None]
  - Hyperlipidaemia [None]
  - Palpitations [None]
  - Gastrooesophageal reflux disease [None]
  - Myocardial ischaemia [None]
  - Hypervolaemia [None]
  - Acute kidney injury [None]

NARRATIVE: CASE EVENT DATE: 20240513
